FAERS Safety Report 7810536-9 (Version None)
Quarter: 2011Q4

REPORT INFORMATION
  Report Type: 
  Country: None (occurrence: None)
  Receive Date: 20111013
  Receipt Date: 20111004
  Transmission Date: 20120403
  Serious: Yes (Hospitalization)
  Sender: FDA-Public Use
  Company Number: US-BIOGENIDEC-2011BI032111

PATIENT
  Age: 48 Year
  Sex: Male

DRUGS (2)
  1. TYSABRI [Suspect]
     Indication: MULTIPLE SCLEROSIS
     Route: 042
     Dates: start: 20081203
  2. BACLOFEN [Concomitant]
     Indication: MUSCLE SPASTICITY
     Route: 037

REACTIONS (2)
  - MUSCLE SPASTICITY [None]
  - FALL [None]
